FAERS Safety Report 5265360-0 (Version None)
Quarter: 2007Q1

REPORT INFORMATION
  Report Type: 
  Country: None (occurrence: None)
  Receive Date: 20070314
  Receipt Date: 20070306
  Transmission Date: 20070707
  Serious: Yes (Hospitalization, Other)
  Sender: FDA-Public Use
  Company Number: NO-PFIZER INC-2006069957

PATIENT
  Sex: Male
  Weight: 76 kg

DRUGS (8)
  1. LYRICA [Suspect]
     Indication: PARALYSIS
     Route: 048
     Dates: start: 20060213, end: 20061101
  2. COCAINE [Concomitant]
     Route: 065
  3. ROHYPNOL [Concomitant]
     Route: 048
  4. STESOLID [Concomitant]
     Route: 065
  5. VIVAL [Concomitant]
     Route: 048
  6. AMPHETAMINE [Concomitant]
     Route: 065
  7. SOMADRIL [Concomitant]
     Route: 048
  8. RIVOTRIL [Concomitant]
     Route: 048

REACTIONS (6)
  - AGGRESSION [None]
  - DRUG ABUSER [None]
  - INSOMNIA [None]
  - MOOD ALTERED [None]
  - PSYCHOTIC DISORDER [None]
  - RESTLESSNESS [None]
